FAERS Safety Report 22290067 (Version 1)
Quarter: 2023Q2

REPORT INFORMATION
  Report Type: Spontaneous
  Country: CH (occurrence: None)
  Receive Date: 20230505
  Receipt Date: 20230505
  Transmission Date: 20230721
  Serious: Yes (Other)
  Sender: FDA-Public Use
  Company Number: CH-Merck Healthcare KGaA-9284184

PATIENT
  Age: 64 Year
  Sex: Female

DRUGS (4)
  1. TEPMETKO [Suspect]
     Active Substance: TEPOTINIB HYDROCHLORIDE
     Indication: Non-small cell lung cancer
     Route: 048
  2. TEPMETKO [Suspect]
     Active Substance: TEPOTINIB HYDROCHLORIDE
     Route: 048
  3. DENOSUMAB [Concomitant]
     Active Substance: DENOSUMAB
     Indication: Non-small cell lung cancer
  4. DENOSUMAB [Concomitant]
     Active Substance: DENOSUMAB
     Indication: Prophylaxis

REACTIONS (2)
  - Hepatic enzyme increased [Unknown]
  - Malignant pleural effusion [Unknown]
